FAERS Safety Report 5843175-X (Version None)
Quarter: 2008Q3

REPORT INFORMATION
  Report Type: 
  Country: None (occurrence: None)
  Receive Date: 20080813
  Receipt Date: 20080730
  Transmission Date: 20090109
  Serious: Yes (Other)
  Sender: FDA-Public Use
  Company Number: PHHY2008JP16365

PATIENT
  Age: 57 Year
  Sex: Female

DRUGS (9)
  1. AREDIA [Suspect]
     Dosage: 45 MG, UNK
     Route: 042
     Dates: start: 20040101, end: 20041201
  2. AREDIA [Suspect]
     Dosage: 90 MG, UNK
     Route: 042
     Dates: start: 20050101, end: 20060501
  3. ZOMETA [Suspect]
     Dosage: 4 MG, UNK
     Route: 042
     Dates: start: 20060601, end: 20070501
  4. FARMORUBICIN [Concomitant]
     Dosage: UNK
     Dates: start: 20031201, end: 20040601
  5. ENDOXAN [Concomitant]
     Dosage: UNK
     Dates: start: 20031201, end: 20040601
  6. ARIMIDEX [Concomitant]
  7. TAXOTERE [Concomitant]
  8. XELODA [Concomitant]
  9. TS 1 [Concomitant]

REACTIONS (1)
  - OSTEONECROSIS [None]
